FAERS Safety Report 17043156 (Version 1)
Quarter: 2019Q4

REPORT INFORMATION
  Report Type: Spontaneous
  Country: US (occurrence: US)
  Receive Date: 20191017
  Receipt Date: 20191017
  Transmission Date: 20200122
  Serious: No
  Sender: FDA-Public Use
  Company Number: None

PATIENT
  Age: 48 Year
  Sex: Female
  Weight: 79.83 kg

DRUGS (1)
  1. GADAVIST [Suspect]
     Active Substance: GADOBUTROL
     Indication: PITUITARY TUMOUR BENIGN
     Dosage: ?          OTHER ROUTE:IV-LT AC?

REACTIONS (1)
  - Urticaria [None]

NARRATIVE: CASE EVENT DATE: 20191007
